FAERS Safety Report 9270803 (Version 1)
Quarter: 2013Q2

REPORT INFORMATION
  Report Type: Spontaneous
  Country: FR (occurrence: FR)
  Receive Date: 20130503
  Receipt Date: 20130503
  Transmission Date: 20140414
  Serious: Yes (Other)
  Sender: FDA-Public Use
  Company Number: FR-NICOBRDEVP-2013-07572

PATIENT
  Age: 66 Year
  Sex: Female

DRUGS (5)
  1. OLANZAPINE (UNKNOWN) [Suspect]
     Indication: ABNORMAL BEHAVIOUR
     Dosage: 1 DF, DAILY
     Route: 048
     Dates: end: 20130419
  2. ZOLPIDEM TARTRATE (UNKNOWN) [Suspect]
     Indication: SLEEP DISORDER
     Dosage: 1 TABLET IF NEEDED
     Route: 048
  3. TRANXENE [Suspect]
     Indication: ANXIETY
     Dosage: 1 TABLET, TID
     Route: 048
  4. LIBRAX /00033301/ [Suspect]
     Indication: ANXIETY
     Dosage: 1 DF, BID
     Route: 048
     Dates: end: 20130419
  5. THERALENE [Suspect]
     Indication: SLEEP DISORDER
     Dosage: 1 TABLET, DAILY
     Route: 048
     Dates: end: 20130419

REACTIONS (4)
  - Rhabdomyolysis [Recovered/Resolved]
  - Blood creatine phosphokinase increased [Recovered/Resolved]
  - Troponin increased [Recovered/Resolved]
  - Electrocardiogram abnormal [Recovered/Resolved]
